FAERS Safety Report 8780336 (Version 1)
Quarter: 2012Q4

REPORT INFORMATION
  Report Type: Spontaneous
  Country: US (occurrence: None)
  Receive Date: 20120905
  Receipt Date: 20120905
  Transmission Date: 20130627
  Serious: No
  Sender: FDA-Public Use
  Company Number: None

PATIENT
  Age: 56 Year
  Sex: Male

DRUGS (1)
  1. ENBREL [Suspect]
     Route: 058
     Dates: start: 20120217, end: 20120829

REACTIONS (6)
  - Pruritus [None]
  - Chest pain [None]
  - Restless legs syndrome [None]
  - Anxiety [None]
  - Mood swings [None]
  - Suicidal ideation [None]
